FAERS Safety Report 8234158-3 (Version None)
Quarter: 2012Q1

REPORT INFORMATION
  Report Type: 
  Country: None (occurrence: None)
  Receive Date: 20120326
  Receipt Date: 20120322
  Transmission Date: 20120608
  Serious: Yes (Life-Threatening)
  Sender: FDA-Public Use
  Company Number: JP-EISAI INC-E2020-10444-SPO-JP

PATIENT
  Age: 75 Year
  Sex: Female
  Weight: 44.6 kg

DRUGS (3)
  1. ABILIFY [Interacting]
     Route: 048
     Dates: start: 20110816, end: 20110905
  2. ARICEPT [Suspect]
     Indication: DEMENTIA ALZHEIMER'S TYPE
     Route: 048
     Dates: end: 20110905
  3. ABILIFY [Interacting]
     Indication: DEMENTIA ALZHEIMER'S TYPE
     Route: 048
     Dates: end: 20110815

REACTIONS (3)
  - LONG QT SYNDROME [None]
  - VENTRICULAR TACHYCARDIA [None]
  - DRUG INTERACTION [None]
